FAERS Safety Report 13977600 (Version 2)
Quarter: 2017Q4

REPORT INFORMATION
  Report Type: Spontaneous
  Country: US (occurrence: US)
  Receive Date: 20170915
  Receipt Date: 20171005
  Transmission Date: 20180321
  Serious: Yes (Death)
  Sender: FDA-Public Use
  Company Number: PHEH2017US029692

PATIENT
  Age: 57 Year
  Sex: Female

DRUGS (1)
  1. TAFINLAR [Suspect]
     Active Substance: DABRAFENIB MESYLATE
     Indication: MALIGNANT MELANOMA
     Dosage: 100 MG, BID
     Route: 048
     Dates: start: 20170516

REACTIONS (3)
  - Metastases to central nervous system [Fatal]
  - Malignant neoplasm progression [Fatal]
  - Metastatic malignant melanoma [Fatal]

NARRATIVE: CASE EVENT DATE: 20170907
